FAERS Safety Report 19899823 (Version 1)
Quarter: 2021Q3

REPORT INFORMATION
  Report Type: Spontaneous
  Country: DE (occurrence: DE)
  Receive Date: 20210929
  Receipt Date: 20210929
  Transmission Date: 20211014
  Serious: Yes (Hospitalization)
  Sender: FDA-Public Use
  Company Number: DE-MYLANLABS-2021M1066555

PATIENT
  Age: 56 Year
  Sex: Female
  Weight: 103 kg

DRUGS (16)
  1. SPIRONOLACTONE. [Suspect]
     Active Substance: SPIRONOLACTONE
     Indication: PRODUCT USED FOR UNKNOWN INDICATION
     Dosage: 50 MILLIGRAM, BID, (2?2?0?0)
     Route: 048
  2. FUROSEMIDE. [Suspect]
     Active Substance: FUROSEMIDE
     Indication: PRODUCT USED FOR UNKNOWN INDICATION
     Dosage: 40 MG, 2?2?0.5?0
     Route: 048
  3. HEPA?MERZ                          /01390204/ [Concomitant]
     Active Substance: ORNITHINE ASPARTATE
     Dosage: 6 GRAM, TID, (1?1?1?0)
     Route: 048
  4. APIXABAN [Concomitant]
     Active Substance: APIXABAN
     Dosage: 2.5 MILLIGRAM, BID, (1?0?1?0)
     Route: 048
  5. HUMALOG [Concomitant]
     Active Substance: INSULIN LISPRO
     Dosage: NACH PATIENTENSCHEMA, INJEKTIONS?/INFUSIONSL?SUNG
     Route: 058
  6. LACTULOSE. [Concomitant]
     Active Substance: LACTULOSE
     Dosage: 10 MILLILITER, TID, (1?1?1?0)
     Route: 048
  7. THIAMIN                            /00056101/ [Concomitant]
     Active Substance: THIAMINE
     Dosage: 100 MILLIGRAM, QD, (1?0?0?0)
     Route: 048
  8. BISOPROLOL [Concomitant]
     Active Substance: BISOPROLOL
     Dosage: 2.5 MILLIGRAM, QD, 0?0?1?0
     Route: 048
  9. INSULIN GLARGINE [Concomitant]
     Active Substance: INSULIN GLARGINE
     Dosage: 16 IE, 0?0?0?1, INJEKTIONS?/INFUSIONSL?SUNG
     Route: 058
  10. XIPAMIDE [Suspect]
     Active Substance: XIPAMIDE
     Indication: PRODUCT USED FOR UNKNOWN INDICATION
     Dosage: 10 MILLIGRAM, QD (1?0?0?0)
     Route: 048
  11. KALIUM                             /00031401/ [Concomitant]
     Active Substance: POTASSIUM CHLORIDE
     Dosage: 8 MMOL, 3?3?3?3, KAPSELN
     Route: 048
  12. PANTOPRAZOL                        /01263201/ [Concomitant]
     Active Substance: PANTOPRAZOLE
     Dosage: 20 MILLIGRAM, QD, (1?0?0?0)
     Route: 048
  13. NALOXONE HYDROCHLORIDE W/OXYCODONE HYDROCHLOR [Concomitant]
     Active Substance: NALOXONE HYDROCHLORIDE\OXYCODONE HYDROCHLORIDE
     Dosage: 5|10 MG, 1?0?1?0
     Route: 048
  14. METAMIZOL                          /06276701/ [Concomitant]
     Active Substance: METAMIZOLE
     Dosage: 1 GRAM, Q4D, 1?1?1?1
     Route: 048
  15. LEVOTHYROXINUM NATRICUM [Concomitant]
     Dosage: 150 MICROGRAM, QD, (1?0?0?0)
     Route: 048
  16. COLECALCIFEROL [Concomitant]
     Active Substance: CHOLECALCIFEROL
     Dosage: 1000 INTERNATIONAL UNIT, QD (1?0?0?0)
     Route: 048

REACTIONS (3)
  - Condition aggravated [Unknown]
  - Weight increased [Unknown]
  - Renal impairment [Unknown]
